FAERS Safety Report 6678106-6 (Version None)
Quarter: 2010Q2

REPORT INFORMATION
  Report Type: 
  Country: None (occurrence: None)
  Receive Date: 20100412
  Receipt Date: 20100331
  Transmission Date: 20101027
  Serious: Yes (Other)
  Sender: FDA-Public Use
  Company Number: NL-ROCHE-694668

PATIENT

DRUGS (1)
  1. ROACTEMRA [Suspect]
     Indication: DRUG USE FOR UNKNOWN INDICATION
     Dosage: START DATE: 2010; FORM: INFUSION
     Route: 042

REACTIONS (1)
  - TRANSIENT GLOBAL AMNESIA [None]
